FAERS Safety Report 5455853-5 (Version None)
Quarter: 2007Q3

REPORT INFORMATION
  Report Type: 
  Country: None (occurrence: None)
  Receive Date: 20070918
  Receipt Date: 20070330
  Transmission Date: 20080115
  Serious: Yes (Other)
  Sender: FDA-Public Use
  Company Number: US-ASTRAZENECA-2006UW23915

PATIENT
  Age: 17758 Day
  Sex: Female
  Weight: 58.2 kg

DRUGS (6)
  1. SEROQUEL [Suspect]
     Indication: SCHIZOPHRENIA
     Route: 048
     Dates: end: 20030101
  2. SEROQUEL [Suspect]
     Indication: BIPOLAR DISORDER
     Route: 048
     Dates: end: 20030101
  3. SEROQUEL [Suspect]
     Indication: DEPRESSION
     Route: 048
     Dates: end: 20030101
  4. ABILIFY [Concomitant]
  5. RISPERDAL [Concomitant]
  6. ZYPREXA [Concomitant]

REACTIONS (4)
  - DIABETIC COMA [None]
  - DIABETIC KETOACIDOSIS [None]
  - PANCREATITIS [None]
  - TYPE 2 DIABETES MELLITUS [None]
